FAERS Safety Report 19960056 (Version 1)
Quarter: 2021Q4

REPORT INFORMATION
  Report Type: Spontaneous
  Country: US (occurrence: US)
  Receive Date: 20211015
  Receipt Date: 20211015
  Transmission Date: 20220303
  Serious: Yes (Hospitalization, Other)
  Sender: FDA-Public Use
  Company Number: US-UCBSA-2021047799

PATIENT
  Age: 76 Year
  Sex: Female

DRUGS (8)
  1. CIMZIA [Suspect]
     Active Substance: CERTOLIZUMAB PEGOL
     Indication: Product used for unknown indication
     Dosage: UNK
     Dates: start: 202104
  2. DUPIXENT [Suspect]
     Active Substance: DUPILUMAB
     Indication: Dermatitis atopic
     Dosage: 600 MILLIGRAM, ONCE
     Route: 058
     Dates: start: 20210204, end: 20210204
  3. DUPIXENT [Suspect]
     Active Substance: DUPILUMAB
     Dosage: 300 MILLIGRAM, EV 2 WEEKS(QOW)
     Route: 058
     Dates: start: 20210218, end: 20210219
  4. DUPIXENT [Suspect]
     Active Substance: DUPILUMAB
     Dosage: 600 MILLIGRAM, ONCE
     Route: 058
     Dates: start: 20210817, end: 20210817
  5. DUPIXENT [Suspect]
     Active Substance: DUPILUMAB
     Dosage: 300 MILLIGRAM, EV 2 WEEKS(QOW)
     Route: 058
     Dates: start: 20210902, end: 2021
  6. STELARA [Suspect]
     Active Substance: USTEKINUMAB
     Indication: Product used for unknown indication
     Dosage: UNK
  7. MODERNA COVID-19 VACCINE [Suspect]
     Active Substance: CX-024414
     Indication: COVID-19 immunisation
     Dosage: UNK
     Dates: start: 20210830
  8. LASIX [Concomitant]
     Active Substance: FUROSEMIDE
     Indication: Pulmonary oedema

REACTIONS (18)
  - Lupus-like syndrome [Not Recovered/Not Resolved]
  - Haemolytic anaemia [Not Recovered/Not Resolved]
  - Renal failure [Not Recovered/Not Resolved]
  - Pulmonary oedema [Not Recovered/Not Resolved]
  - Angioedema [Not Recovered/Not Resolved]
  - Haemoglobin decreased [Not Recovered/Not Resolved]
  - Depressed mood [Not Recovered/Not Resolved]
  - Pain [Recovering/Resolving]
  - Skin exfoliation [Recovered/Resolved]
  - Blister [Recovered/Resolved]
  - Tremor [Recovering/Resolving]
  - Headache [Recovered/Resolved]
  - Decreased appetite [Recovering/Resolving]
  - Rash [Not Recovered/Not Resolved]
  - Vaccination complication [Recovered/Resolved]
  - Chills [Recovered/Resolved]
  - Asthenia [Recovered/Resolved]
  - COVID-19 immunisation [Unknown]

NARRATIVE: CASE EVENT DATE: 20210101
